FAERS Safety Report 18314149 (Version 2)
Quarter: 2020Q4

REPORT INFORMATION
  Report Type: Report from Study
  Country: None (occurrence: BR)
  Receive Date: 20200926
  Receipt Date: 20201012
  Transmission Date: 20210113
  Serious: Yes (Death, Other)
  Sender: FDA-Public Use
  Company Number: BR-ABBVIE-20P-020-3579271-00

PATIENT
  Sex: Female
  Weight: 60 kg

DRUGS (10)
  1. DEPAKOTE ER [Suspect]
     Active Substance: DIVALPROEX SODIUM
     Dosage: PATIENT HAD CONVULSIVE CRISIS AND DOSE WAS INCREASED
     Route: 048
  2. AKINETON [Concomitant]
     Active Substance: BIPERIDEN HYDROCHLORIDE
     Indication: PARKINSON^S DISEASE
     Route: 048
  3. DEPAKOTE ER [Suspect]
     Active Substance: DIVALPROEX SODIUM
     Dosage: DAILY DOSE: 3 TABLETS (ADMINISTERED, AFTER LUNCH, AFTER DINNER; USED UNTIL DEATH)
     Route: 048
  4. DEPAKOTE ER [Suspect]
     Active Substance: DIVALPROEX SODIUM
     Dosage: PATIENT HAD CONVULSIVE CRISIS AND DOSE WAS INCREASED
     Route: 048
  5. ENALAPRIL [Concomitant]
     Active Substance: ENALAPRIL
     Indication: HYPERTENSION
     Route: 048
  6. HYDROCHLOROTHIAZIDE. [Concomitant]
     Active Substance: HYDROCHLOROTHIAZIDE
     Indication: DIURETIC THERAPY
     Route: 048
  7. RIVASTIGMINE. [Concomitant]
     Active Substance: RIVASTIGMINE
     Indication: DEMENTIA ALZHEIMER^S TYPE
     Route: 048
  8. RIVASTIGMINE. [Concomitant]
     Active Substance: RIVASTIGMINE
     Indication: DEMENTIA
  9. DEPAKOTE ER [Suspect]
     Active Substance: DIVALPROEX SODIUM
     Dosage: DOSE DECREASED BECAUSE PHYSICIAN WAS TRYING TO WEAN OUT THE MEDICATION
     Route: 048
  10. DEPAKOTE ER [Suspect]
     Active Substance: DIVALPROEX SODIUM
     Indication: EPILEPSY
     Dosage: INITIAL DOSE WAS NOT INFORMED
     Route: 048
     Dates: start: 2007

REACTIONS (7)
  - Cardio-respiratory arrest [Fatal]
  - Unevaluable event [Fatal]
  - Inappropriate schedule of product administration [Unknown]
  - Seizure [Unknown]
  - Off label use [Unknown]
  - Skin discolouration [Fatal]
  - Multiple organ dysfunction syndrome [Fatal]

NARRATIVE: CASE EVENT DATE: 20200914
